FAERS Safety Report 8456222-6 (Version None)
Quarter: 2012Q2

REPORT INFORMATION
  Report Type: 
  Country: None (occurrence: None)
  Receive Date: 20120621
  Receipt Date: 20120612
  Transmission Date: 20120825
  Serious: Yes (Other)
  Sender: FDA-Public Use
  Company Number: FR-ABBOTT-12P-056-0904941-00

PATIENT
  Sex: Female

DRUGS (3)
  1. FOLIC ACID [Concomitant]
     Indication: PRODUCT USED FOR UNKNOWN INDICATION
  2. HUMIRA [Suspect]
     Indication: CROHN'S DISEASE
     Route: 058
     Dates: start: 20100301
  3. METHOTREXATE [Suspect]
     Indication: PRODUCT USED FOR UNKNOWN INDICATION
     Dosage: WEEKLY
     Dates: start: 20120316

REACTIONS (12)
  - DECREASED APPETITE [None]
  - NAUSEA [None]
  - FATIGUE [None]
  - SPONDYLITIS [None]
  - HYPOALBUMINAEMIA [None]
  - ANTINUCLEAR ANTIBODY POSITIVE [None]
  - DIARRHOEA [None]
  - WEIGHT DECREASED [None]
  - SYSTEMIC LUPUS ERYTHEMATOSUS [None]
  - ARTHRITIS [None]
  - MUSCULOSKELETAL PAIN [None]
  - DRUG INTOLERANCE [None]
